FAERS Safety Report 7355895-9 (Version None)
Quarter: 2011Q1

REPORT INFORMATION
  Report Type: 
  Country: None (occurrence: None)
  Receive Date: 20110316
  Receipt Date: 20101104
  Transmission Date: 20110831
  Serious: No
  Sender: FDA-Public Use
  Company Number: US-BAYER-201023441BCC

PATIENT
  Sex: Female
  Weight: 72.727 kg

DRUGS (3)
  1. CORTISONE [Concomitant]
     Indication: ARTHRALGIA
     Dosage: UNK
     Dates: start: 20101029
  2. NEXIUM [Concomitant]
  3. ALEVE [Suspect]
     Indication: ARTHRALGIA
     Dosage: 440 MG, ONCE, BOTTLE COUNT 50S
     Route: 048
     Dates: start: 20101030, end: 20101030

REACTIONS (3)
  - HYPERSENSITIVITY [None]
  - FLUSHING [None]
  - RASH MACULAR [None]
